FAERS Safety Report 8062781-8 (Version None)
Quarter: 2012Q1

REPORT INFORMATION
  Report Type: 
  Country: None (occurrence: None)
  Receive Date: 20120123
  Receipt Date: 20120111
  Transmission Date: 20120608
  Serious: Yes (Hospitalization)
  Sender: FDA-Public Use
  Company Number: JP-ELI_LILLY_AND_COMPANY-JP201112003938

PATIENT
  Sex: Female
  Weight: 25 kg

DRUGS (7)
  1. LISINOPRIL [Concomitant]
     Dosage: 5 MG, OTHER
     Route: 048
  2. STRATTERA [Suspect]
     Dosage: 10 MG, TID
     Route: 048
     Dates: start: 20111026, end: 20111213
  3. STRATTERA [Suspect]
     Indication: ATTENTION DEFICIT/HYPERACTIVITY DISORDER
     Dosage: 5 MG, BID
     Route: 048
     Dates: start: 20110202, end: 20110222
  4. ONEALFA [Concomitant]
     Dosage: 0.5 UG,
     Route: 048
  5. RESTAMIN [Concomitant]
     Dosage: 1 %, OTHER
     Route: 062
  6. STRATTERA [Suspect]
     Dosage: 10 MG, BID
     Route: 048
     Dates: start: 20110223, end: 20111025
  7. BETAMETHASONE [Concomitant]
     Dosage: 0.12 %, OTHER
     Route: 062

REACTIONS (8)
  - NASOPHARYNGITIS [None]
  - AMYLASE INCREASED [None]
  - GLOMERULONEPHRITIS [None]
  - LIVER FUNCTION TEST ABNORMAL [None]
  - SYSTEMIC LUPUS ERYTHEMATOSUS [None]
  - JOINT SWELLING [None]
  - JOINT WARMTH [None]
  - PYREXIA [None]
